FAERS Safety Report 18575850 (Version 1)
Quarter: 2020Q4

REPORT INFORMATION
  Report Type: Spontaneous
  Country: US (occurrence: US)
  Receive Date: 20201203
  Receipt Date: 20201203
  Transmission Date: 20210114
  Serious: Yes (Other)
  Sender: FDA-Public Use
  Company Number: US-PURDUE-USA-2020-0174423

PATIENT
  Sex: Male

DRUGS (2)
  1. HEROIN [Suspect]
     Active Substance: DIAMORPHINE
     Indication: PRODUCT USED FOR UNKNOWN INDICATION
     Dosage: UNK
     Route: 065
  2. OXYCONTIN [Suspect]
     Active Substance: OXYCODONE HYDROCHLORIDE
     Indication: PAIN
     Dosage: UNK, WEEKLY
     Route: 048
     Dates: start: 2001

REACTIONS (14)
  - Hepatitis A [Unknown]
  - Ankle fracture [Unknown]
  - Drug dependence [Unknown]
  - Post-traumatic stress disorder [Unknown]
  - Scar [Unknown]
  - Suicidal ideation [Unknown]
  - Multiple fractures [Unknown]
  - Injury [Unknown]
  - Rib fracture [Unknown]
  - Emotional distress [Unknown]
  - Surgery [Unknown]
  - Overdose [Unknown]
  - Hepatitis C [Unknown]
  - Pain [Unknown]
